FAERS Safety Report 7951003-1 (Version None)
Quarter: 2011Q4

REPORT INFORMATION
  Report Type: 
  Country: None (occurrence: None)
  Receive Date: 20111201
  Receipt Date: 20111128
  Transmission Date: 20120403
  Serious: No
  Sender: FDA-Public Use
  Company Number: US-BIOGENIDEC-2011BI045017

PATIENT
  Age: 55 Year
  Sex: Female

DRUGS (7)
  1. TYLENOL W/ CODEINE NO. 3 [Concomitant]
     Indication: MIGRAINE
  2. NEURONTIN [Concomitant]
     Indication: MUSCLE SPASMS
  3. AMBIEN [Concomitant]
     Indication: INSOMNIA
  4. TYSABRI [Suspect]
     Indication: MULTIPLE SCLEROSIS
     Route: 042
     Dates: start: 20081223
  5. BACLOFEN [Concomitant]
     Indication: MUSCLE SPASMS
  6. BUTAL-APAP 325 CAFFEINE TAB [Concomitant]
     Indication: MIGRAINE
  7. PAIN MEDICATION (NOS) [Concomitant]
     Indication: MUSCLE SPASMS

REACTIONS (2)
  - TENDON RUPTURE [None]
  - ROTATOR CUFF SYNDROME [None]
